FAERS Safety Report 4619772-6 (Version None)
Quarter: 2005Q1

REPORT INFORMATION
  Report Type: 
  Country: None (occurrence: None)
  Receive Date: 20050325
  Receipt Date: 20050317
  Transmission Date: 20050727
  Serious: Yes (Disabling)
  Sender: FDA-Public Use
  Company Number: US-MERCK-0503USA03082

PATIENT
  Age: 40 Year
  Sex: Female

DRUGS (5)
  1. VIOXX [Suspect]
     Indication: ARTHRITIS
     Route: 048
     Dates: start: 20020101, end: 20040701
  2. VICODIN [Concomitant]
     Route: 065
  3. URISTAT [Concomitant]
     Route: 065
  4. CELEXA [Concomitant]
     Route: 065
  5. BACLOFEN [Concomitant]
     Route: 065

REACTIONS (4)
  - ABDOMINAL PAIN [None]
  - CONSTIPATION [None]
  - SEXUAL DYSFUNCTION [None]
  - URINARY TRACT INFECTION [None]
